FAERS Safety Report 23868094 (Version 3)
Quarter: 2024Q3

REPORT INFORMATION
  Report Type: Spontaneous
  Country: SE (occurrence: None)
  Receive Date: 20240517
  Receipt Date: 20240704
  Transmission Date: 20241017
  Serious: Yes (Other)
  Sender: ASTRAZENECA
  Company Number: 2024A113219

PATIENT
  Age: 76 Year
  Sex: Male

DRUGS (3)
  1. FASENRA [Suspect]
     Active Substance: BENRALIZUMAB
     Indication: Asthma
     Route: 055
     Dates: start: 20240510
  2. FASENRA [Suspect]
     Active Substance: BENRALIZUMAB
     Indication: Asthma
     Route: 055
     Dates: start: 20240313
  3. FASENRA [Suspect]
     Active Substance: BENRALIZUMAB
     Indication: Asthma
     Route: 055

REACTIONS (3)
  - Bacterial infection [Recovering/Resolving]
  - Moraxella infection [Unknown]
  - Inappropriate schedule of product administration [Unknown]
